FAERS Safety Report 19731278 (Version 2)
Quarter: 2021Q3

REPORT INFORMATION
  Report Type: Spontaneous
  Country: CA (occurrence: CA)
  Receive Date: 20210820
  Receipt Date: 20210820
  Transmission Date: 20211014
  Serious: Yes (Other)
  Sender: FDA-Public Use
  Company Number: CA-JAZZ-2020-CA-012053

PATIENT
  Age: 73 Year
  Sex: Female

DRUGS (4)
  1. VYXEOS [Suspect]
     Active Substance: CYTARABINE\DAUNORUBICIN
     Dosage: 65 MG/M2 CYTARABINE AND 29 MG/M2 (DAY 1 AND 3)
  2. MIDOSTAURIN [Suspect]
     Active Substance: MIDOSTAURIN
     Dosage: 50 MG TWICE A DAY (DAY 8 TO DAY 21)
  3. VYXEOS [Suspect]
     Active Substance: CYTARABINE\DAUNORUBICIN
     Indication: ACUTE MYELOID LEUKAEMIA
     Dosage: 100 MG/M2 CYTARABINE AND 44 MG/M2 DAUNORUBICIN (DAY 1,3 AND 5)
  4. MIDOSTAURIN [Suspect]
     Active Substance: MIDOSTAURIN
     Indication: ACUTE MYELOID LEUKAEMIA
     Dosage: 50 MG TWICE A DAY (DAY 8 TO DAY 21)

REACTIONS (1)
  - Febrile neutropenia [Recovered/Resolved]
